FAERS Safety Report 4748907-X (Version None)
Quarter: 2005Q3

REPORT INFORMATION
  Report Type: 
  Country: None (occurrence: None)
  Receive Date: 20050812
  Receipt Date: 20050712
  Transmission Date: 20060218
  Serious: Yes (Hospitalization)
  Sender: FDA-Public Use
  Company Number: 363593

PATIENT
  Age: 49 Year
  Sex: Female

DRUGS (3)
  1. PEGASYS [Suspect]
     Dosage: SUBCUTANEOUS
     Route: 058
     Dates: start: 20031114
  2. COPEGUS [Suspect]
     Dosage: ORAL
     Route: 048
     Dates: start: 20031114
  3. TRIMOX (AMOXICILLIN) [Concomitant]

REACTIONS (7)
  - EYE INFLAMMATION [None]
  - EYE PRURITUS [None]
  - OCULAR HYPERAEMIA [None]
  - PRODUCTIVE COUGH [None]
  - PRURITUS GENERALISED [None]
  - SPUTUM DISCOLOURED [None]
  - WHITE BLOOD CELL COUNT DECREASED [None]
